FAERS Safety Report 9883314 (Version 2)
Quarter: 2014Q2

REPORT INFORMATION
  Report Type: Spontaneous
  Country: GB (occurrence: GB)
  Receive Date: 20140210
  Receipt Date: 20140407
  Transmission Date: 20141212
  Serious: Yes (Hospitalization, Other)
  Sender: FDA-Public Use
  Company Number: GB-ROCHE-1345787

PATIENT
  Age: 66 Year
  Sex: Male

DRUGS (5)
  1. RIBAVIRIN [Suspect]
     Indication: HEPATITIS C
     Route: 048
  2. PEGASYS [Suspect]
     Indication: HEPATITIS C
     Route: 058
  3. INCIVO [Suspect]
     Indication: HEPATITIS C
     Route: 048
  4. AMLODIPINE [Concomitant]
  5. LOSARTAN [Concomitant]

REACTIONS (4)
  - Nausea [Unknown]
  - Vomiting [Unknown]
  - Rash [Unknown]
  - Renal impairment [Recovered/Resolved]
